FAERS Safety Report 8962415 (Version 2)
Quarter: 2012Q4

REPORT INFORMATION
  Report Type: 
  Country: CN (occurrence: CN)
  Receive Date: 20121213
  Receipt Date: 20121225
  Transmission Date: 20130627
  Serious: Yes (Other)
  Sender: FDA-Public Use
  Company Number: CN-BRISTOL-MYERS SQUIBB COMPANY-17184466

PATIENT

DRUGS (1)
  1. COAPROVEL TABS 150MG/12.5MG [Suspect]
     Route: 048

REACTIONS (1)
  - Gastric cancer [Unknown]
